FAERS Safety Report 6561108-8 (Version None)
Quarter: 2010Q1

REPORT INFORMATION
  Report Type: 
  Country: None (occurrence: None)
  Receive Date: 20100130
  Receipt Date: 20091002
  Transmission Date: 20100710
  Serious: No
  Sender: FDA-Public Use
  Company Number: US-ABBOTT-09P-163-0601097-00

PATIENT
  Sex: Female

DRUGS (7)
  1. HUMIRA [Suspect]
     Indication: PSORIATIC ARTHROPATHY
     Route: 058
     Dates: start: 20090301
  2. METHOTREXATE [Suspect]
     Indication: PSORIATIC ARTHROPATHY
     Route: 048
  3. VITAMIN D [Concomitant]
     Indication: VITAMIN D DEFICIENCY
     Route: 048
     Dates: start: 20090801
  4. METFORMIN [Concomitant]
     Indication: DIABETES MELLITUS
     Route: 048
  5. TRIAMTERENE [Concomitant]
     Indication: DRUG USE FOR UNKNOWN INDICATION
     Route: 048
  6. MOBIC [Concomitant]
     Indication: ARTHRITIS
     Route: 048
  7. CALCIUM +VIT D [Concomitant]
     Indication: SUPPLEMENTATION THERAPY
     Route: 048

REACTIONS (4)
  - BURNING SENSATION [None]
  - FINGER DEFORMITY [None]
  - TENDON RUPTURE [None]
  - VITAMIN D DEFICIENCY [None]
